FAERS Safety Report 4695544-1 (Version None)
Quarter: 2005Q2

REPORT INFORMATION
  Report Type: 
  Country: None (occurrence: None)
  Receive Date: 20050523
  Receipt Date: 20050516
  Transmission Date: 20051028
  Serious: Yes (Death, Life-Threatening, Hospitalization)
  Sender: FDA-Public Use
  Company Number: 2005AP02825

PATIENT
  Age: 31112 Day
  Sex: Male

DRUGS (3)
  1. OMEPRAZOLE [Suspect]
     Route: 048
     Dates: start: 20020731, end: 20041211
  2. IRBESARTAN [Suspect]
     Route: 048
     Dates: start: 20040712, end: 20041117
  3. SIMVASTATIN [Concomitant]
     Route: 048
     Dates: start: 19971004, end: 20050211

REACTIONS (3)
  - LOCALISED OEDEMA [None]
  - NEPHRITIS INTERSTITIAL [None]
  - OEDEMA PERIPHERAL [None]
